FAERS Safety Report 6453050-8 (Version None)
Quarter: 2009Q4

REPORT INFORMATION
  Report Type: 
  Country: None (occurrence: None)
  Receive Date: 20091124
  Receipt Date: 20090227
  Transmission Date: 20100525
  Serious: No
  Sender: FDA-Public Use
  Company Number: US-ABBOTT-09P-163-0560233-00

PATIENT
  Sex: Male

DRUGS (8)
  1. TRICOR [Suspect]
     Indication: MIXED HYPERLIPIDAEMIA
     Route: 048
     Dates: start: 20090106, end: 20090219
  2. LIPITOR [Concomitant]
     Indication: MIXED HYPERLIPIDAEMIA
     Route: 048
  3. TAMBOCOR [Concomitant]
     Indication: ATRIAL FLUTTER
     Route: 048
  4. ATENOLOL [Concomitant]
     Indication: DRUG USE FOR UNKNOWN INDICATION
     Route: 048
  5. ASPIRIN [Concomitant]
     Indication: ATRIAL FLUTTER
     Route: 048
  6. AVALIDE [Concomitant]
     Indication: DRUG USE FOR UNKNOWN INDICATION
     Dosage: 150/12.5 ONE DAILY
     Route: 048
  7. ACTOS/METFORMIN [Concomitant]
     Indication: METABOLIC DISORDER
     Dosage: 850/150
     Route: 048
  8. FISH OIL [Concomitant]
     Indication: DRUG USE FOR UNKNOWN INDICATION
     Route: 048

REACTIONS (1)
  - BLOOD CREATININE INCREASED [None]
